FAERS Safety Report 23346552 (Version 1)
Quarter: 2023Q4

REPORT INFORMATION
  Report Type: Spontaneous
  Country: US (occurrence: US)
  Receive Date: 20231228
  Receipt Date: 20231228
  Transmission Date: 20240110
  Serious: Yes (Other)
  Sender: FDA-Public Use
  Company Number: US-PFIZER INC-PV202300204947

PATIENT
  Age: 13 Year
  Sex: Male
  Weight: 36.735 kg

DRUGS (3)
  1. LEVOTHYROXINE SODIUM [Suspect]
     Active Substance: LEVOTHYROXINE SODIUM
     Dosage: 75 UG
     Dates: start: 2022
  2. LEVOTHYROXINE SODIUM [Suspect]
     Active Substance: LEVOTHYROXINE SODIUM
     Dosage: 88 UG
     Dates: end: 202311
  3. LEVOTHYROXINE SODIUM [Suspect]
     Active Substance: LEVOTHYROXINE SODIUM
     Dosage: 100 UG, 1X/DAY IN THE MORNING
     Route: 048
     Dates: start: 202311

REACTIONS (2)
  - Hypothyroidism [Unknown]
  - Blood thyroid stimulating hormone decreased [Unknown]
